FAERS Safety Report 5657508-0 (Version None)
Quarter: 2008Q1

REPORT INFORMATION
  Report Type: 
  Country: None (occurrence: None)
  Receive Date: 20080310
  Receipt Date: 20080227
  Transmission Date: 20080703
  Serious: Yes (Other)
  Sender: FDA-Public Use
  Company Number: US-PFIZER INC-2008019285

PATIENT
  Sex: Female
  Weight: 68.636 kg

DRUGS (1)
  1. CHANTIX [Suspect]
     Route: 048

REACTIONS (8)
  - AGGRESSION [None]
  - CRYING [None]
  - DISTURBANCE IN ATTENTION [None]
  - IMPULSIVE BEHAVIOUR [None]
  - INSOMNIA [None]
  - NERVOUSNESS [None]
  - ROAD TRAFFIC ACCIDENT [None]
  - TREMOR [None]
